FAERS Safety Report 7290170-2 (Version None)
Quarter: 2011Q1

REPORT INFORMATION
  Report Type: 
  Country: None (occurrence: None)
  Receive Date: 20110214
  Receipt Date: 20110201
  Transmission Date: 20110831
  Serious: Yes (Hospitalization, Other)
  Sender: FDA-Public Use
  Company Number: PHHY2010CL71352

PATIENT
  Age: 66 Year
  Sex: Female

DRUGS (6)
  1. SERTRALINE HYDROCHLORIDE [Concomitant]
     Dosage: 50 MG, (HALF TABLET PER DAY)
  2. UREN [Concomitant]
  3. OMEPRAZOLE [Concomitant]
  4. CHLORDIAZEPOXIDE W/CLIDINIUM BROMIDE [Concomitant]
  5. CLONAZEPAM [Concomitant]
     Dosage: 0.5 MG, HALF TABLET AT NIGTH
  6. TAREG D [Suspect]
     Indication: HYPERTENSION
     Dosage: 80/12.5 MG
     Dates: start: 20100501

REACTIONS (2)
  - ABDOMINAL PAIN UPPER [None]
  - ANASTOMOTIC COMPLICATION [None]
